FAERS Safety Report 14210858 (Version 3)
Quarter: 2018Q1

REPORT INFORMATION
  Report Type: Spontaneous
  Country: AU (occurrence: AU)
  Receive Date: 20171121
  Receipt Date: 20180130
  Transmission Date: 20180508
  Serious: Yes (Other)
  Sender: FDA-Public Use
  Company Number: AU-SA-2017SA227008

PATIENT
  Age: 37 Year
  Sex: Female

DRUGS (1)
  1. LEMTRADA [Suspect]
     Active Substance: ALEMTUZUMAB
     Route: 041

REACTIONS (4)
  - Dyspnoea [Unknown]
  - Fibrin D dimer increased [Unknown]
  - Chest pain [Unknown]
  - Pulmonary embolism [Unknown]
